FAERS Safety Report 8400122-4 (Version None)
Quarter: 2012Q2

REPORT INFORMATION
  Report Type: 
  Country: None (occurrence: None)
  Receive Date: 20120531
  Receipt Date: 20120528
  Transmission Date: 20120825
  Serious: Yes (Other)
  Sender: FDA-Public Use
  Company Number: BR-PFIZER INC-2012108625

PATIENT
  Age: 34 Year
  Sex: Male

DRUGS (4)
  1. LIPITOR [Suspect]
     Indication: BLOOD CHOLESTEROL
  2. LIPITOR [Suspect]
     Indication: BLOOD TRIGLYCERIDES
  3. GINKGO BILOBA [Concomitant]
     Indication: CARDIOVASCULAR DISORDER
     Dosage: UNK
  4. LIPITOR [Suspect]
     Indication: BLOOD TRIGLYCERIDES INCREASED
     Dosage: 10 MG, ONCE DAILY
     Route: 048
     Dates: start: 20120424, end: 20120101

REACTIONS (9)
  - DYSENTERY [None]
  - PAIN IN EXTREMITY [None]
  - ANGIOPATHY [None]
  - MYALGIA [None]
  - HEADACHE [None]
  - FEELING ABNORMAL [None]
  - BLOOD PRESSURE DECREASED [None]
  - PAIN [None]
  - GENERAL PHYSICAL HEALTH DETERIORATION [None]
